FAERS Safety Report 16300712 (Version 2)
Quarter: 2020Q4

REPORT INFORMATION
  Report Type: Spontaneous
  Country: US (occurrence: US)
  Receive Date: 20190510
  Receipt Date: 20201222
  Transmission Date: 20210113
  Serious: Yes (Other)
  Sender: FDA-Public Use
  Company Number: US-ASTRAZENECA-2019SE65747

PATIENT
  Age: 15493 Day
  Sex: Female
  Weight: 82.1 kg

DRUGS (73)
  1. VITAMIN B COMPLEX [Concomitant]
     Active Substance: CYANOCOBALAMIN\DEXPANTHENOL\NIACINAMIDE\PYRIDOXINE HYDROCHLORIDE\RIBOFLAVIN 5^-PHOSPHATE SODIUM\THIAMINE HYDROCHLORIDE\VITAMIN B COMPLEX
     Indication: RENAL DISORDER
  2. MULTIVITAMINS [Concomitant]
     Active Substance: VITAMINS
     Indication: MULTI-VITAMIN DEFICIENCY
  3. ZANTAC [Concomitant]
     Active Substance: RANITIDINE HYDROCHLORIDE
  4. HYDROCORTISONE. [Concomitant]
     Active Substance: HYDROCORTISONE
  5. TYLENOL WITH CODEINE [Concomitant]
     Active Substance: ACETAMINOPHEN\CODEINE PHOSPHATE
  6. GUAIFENESIN-CODEINE [Concomitant]
  7. VITAMIN E [Concomitant]
     Active Substance: .ALPHA.-TOCOPHEROL
  8. LAMISIL [Concomitant]
     Active Substance: TERBINAFINE HYDROCHLORIDE
  9. CEFTAZIDIBE [Concomitant]
  10. ADERVASTATIN [Concomitant]
     Indication: BLOOD CHOLESTEROL ABNORMAL
  11. ASPIRIN. [Concomitant]
     Active Substance: ASPIRIN
     Indication: CARDIAC DISORDER
  12. LOTRIMIN [Concomitant]
     Active Substance: CLOTRIMAZOLE
  13. ZITHROMAX [Concomitant]
     Active Substance: AZITHROMYCIN DIHYDRATE
  14. LOTRISONE [Concomitant]
     Active Substance: BETAMETHASONE DIPROPIONATE\CLOTRIMAZOLE
  15. BYETTA [Concomitant]
     Active Substance: EXENATIDE
  16. PLAVIX [Concomitant]
     Active Substance: CLOPIDOGREL BISULFATE
  17. IRON [Concomitant]
     Active Substance: IRON
  18. PRILOSEC OTC [Suspect]
     Active Substance: OMEPRAZOLE MAGNESIUM
     Indication: GASTROOESOPHAGEAL REFLUX DISEASE
     Dosage: 20.0MG UNKNOWN
     Route: 048
     Dates: start: 2013, end: 2014
  19. GLIPIZIDE. [Concomitant]
     Active Substance: GLIPIZIDE
  20. ATENOLOL. [Concomitant]
     Active Substance: ATENOLOL
     Indication: BLOOD PRESSURE ABNORMAL
  21. AMOXICILLIN. [Concomitant]
     Active Substance: AMOXICILLIN
  22. TOBREX [Concomitant]
     Active Substance: TOBRAMYCIN
  23. XOPENEX [Concomitant]
     Active Substance: LEVALBUTEROL HYDROCHLORIDE
  24. SPORANOX [Concomitant]
     Active Substance: ITRACONAZOLE
  25. PERMETHRIN. [Concomitant]
     Active Substance: PERMETHRIN
  26. NAFTIN [Concomitant]
     Active Substance: NAFTIFINE HYDROCHLORIDE
  27. GENTAMICIN. [Concomitant]
     Active Substance: GENTAMICIN
  28. SPECTAZOLE [Concomitant]
     Active Substance: ECONAZOLE NITRATE
  29. AUGMENTIN [Concomitant]
     Active Substance: AMOXICILLIN\CLAVULANATE POTASSIUM
  30. RISPERDAL [Concomitant]
     Active Substance: RISPERIDONE
  31. DARVOCET [Concomitant]
     Active Substance: ACETAMINOPHEN\PROPOXYPHENE HYDROCHLORIDE
  32. CHERATUSSIN [Concomitant]
     Active Substance: AMMONIUM CHLORIDE\DEXTROMETHORPHAN\SODIUM CITRATE
  33. SODIUM BICARBONATE. [Concomitant]
     Active Substance: SODIUM BICARBONATE
  34. DOXYLAMINE [Concomitant]
     Active Substance: DOXYLAMINE
  35. FERROUS SULFATE. [Concomitant]
     Active Substance: FERROUS SULFATE
  36. TETRACYCLINE [Concomitant]
     Active Substance: TETRACYCLINE
  37. PREVACID [Suspect]
     Active Substance: LANSOPRAZOLE
     Indication: GASTROOESOPHAGEAL REFLUX DISEASE
     Dosage: 15.0MG UNKNOWN
     Route: 065
     Dates: start: 1998, end: 2012
  38. LISINOPRIL. [Concomitant]
     Active Substance: LISINOPRIL
     Indication: BLOOD PRESSURE ABNORMAL
  39. FISH OIL [Concomitant]
     Active Substance: FISH OIL
     Indication: VITAMIN C DEFICIENCY
  40. PEPCID AC [Concomitant]
     Active Substance: FAMOTIDINE
  41. NOVOLOG [Concomitant]
     Active Substance: INSULIN ASPART
  42. BENZOCAINE. [Concomitant]
     Active Substance: BENZOCAINE
  43. TEMOVATE [Concomitant]
     Active Substance: CLOBETASOL PROPIONATE
  44. FLEXERIL [Concomitant]
     Active Substance: CYCLOBENZAPRINE HYDROCHLORIDE
  45. TRIMETHOPRIM/SULFA [Concomitant]
     Active Substance: SULFAMETHOXAZOLE\TRIMETHOPRIM
  46. PREVACID [Suspect]
     Active Substance: LANSOPRAZOLE
     Indication: GASTROOESOPHAGEAL REFLUX DISEASE
     Route: 065
     Dates: start: 199701, end: 200912
  47. VITAMIN D [Concomitant]
     Active Substance: VITAMIN D NOS
     Indication: VITAMIN C DEFICIENCY
  48. TAGAMET [Concomitant]
     Active Substance: CIMETIDINE
  49. SULFA [Concomitant]
     Active Substance: UNSPECIFIED INGREDIENT
  50. LEXAPRO [Concomitant]
     Active Substance: ESCITALOPRAM OXALATE
  51. METHOCARBAMOL. [Concomitant]
     Active Substance: METHOCARBAMOL
  52. SEROQUEL [Concomitant]
     Active Substance: QUETIAPINE FUMARATE
  53. OMNICEF [Concomitant]
     Active Substance: CEFDINIR
  54. MORPHINE SULFATE. [Concomitant]
     Active Substance: MORPHINE SULFATE
  55. PRILOSEC OTC [Suspect]
     Active Substance: OMEPRAZOLE MAGNESIUM
     Indication: GASTROOESOPHAGEAL REFLUX DISEASE
     Route: 048
     Dates: start: 199701, end: 200912
  56. LANTUS [Concomitant]
     Active Substance: INSULIN GLARGINE
     Indication: DIABETES MELLITUS
  57. BENADRYL [Concomitant]
     Active Substance: DIPHENHYDRAMINE HYDROCHLORIDE
  58. ALLEGRA [Concomitant]
     Active Substance: FEXOFENADINE HYDROCHLORIDE
  59. HYDRIN [Concomitant]
  60. SALEX [Concomitant]
     Active Substance: SALICYLIC ACID
  61. MAGNESIUM OXIDE. [Concomitant]
     Active Substance: MAGNESIUM OXIDE
  62. CEFUROXIME. [Concomitant]
     Active Substance: CEFUROXIME
  63. PIPERACILLIN. [Concomitant]
     Active Substance: PIPERACILLIN SODIUM
  64. LIPITOR [Concomitant]
     Active Substance: ATORVASTATIN CALCIUM
     Indication: BLOOD CHOLESTEROL DECREASED
  65. METFORMIN [Concomitant]
     Active Substance: METFORMIN HYDROCHLORIDE
     Indication: DIABETES MELLITUS
  66. VITAMIN C [Concomitant]
     Active Substance: ASCORBIC ACID
     Indication: VITAMIN C DEFICIENCY
  67. TUMS [Concomitant]
     Active Substance: CALCIUM CARBONATE
  68. IBUPROFEN. [Concomitant]
     Active Substance: IBUPROFEN
  69. STARLIX [Concomitant]
     Active Substance: NATEGLINIDE
  70. LABETALOL HYDROCHLORIDE. [Concomitant]
     Active Substance: LABETALOL HYDROCHLORIDE
  71. TESSALON [Concomitant]
     Active Substance: BENZONATATE
  72. CEPHALEXIN. [Concomitant]
     Active Substance: CEPHALEXIN
  73. TAMSULOSIN HYDROCHLORIDE. [Concomitant]
     Active Substance: TAMSULOSIN HYDROCHLORIDE

REACTIONS (1)
  - Chronic kidney disease [Not Recovered/Not Resolved]

NARRATIVE: CASE EVENT DATE: 20140311
